FAERS Safety Report 21578406 (Version 1)
Quarter: 2022Q4

REPORT INFORMATION
  Report Type: Other
  Country: BG (occurrence: None)
  Receive Date: 20221110
  Receipt Date: 20221110
  Transmission Date: 20230113
  Serious: Yes (Other)
  Sender: FDA-Public Use
  Company Number: BG-ROCHE-3215690

PATIENT
  Age: 90 Year
  Sex: Male

DRUGS (11)
  1. CAPECITABINE [Suspect]
     Active Substance: CAPECITABINE
     Indication: Colon cancer
     Route: 065
     Dates: start: 2021, end: 2021
  2. GINKGO BILOBA LEAF EXTRACT [Concomitant]
     Active Substance: GINKGO BILOBA LEAF EXTRACT
  3. CLOPIDOGREL [Concomitant]
     Active Substance: CLOPIDOGREL BISULFATE
  4. LEVETIRACETAM [Concomitant]
     Active Substance: LEVETIRACETAM
  5. DICLOFENAC SODIUM;OMEPRAZOLE [Concomitant]
     Dosage: 75/25 MG
  6. MEMANTINE HYDROCHLORIDE [Concomitant]
     Active Substance: MEMANTINE HYDROCHLORIDE
  7. VINPOCETINE [Concomitant]
     Active Substance: VINPOCETINE
  8. ROSUVASTATIN [Concomitant]
     Active Substance: ROSUVASTATIN
  9. CLOBETASOL PROPIONATE [Concomitant]
     Active Substance: CLOBETASOL PROPIONATE
     Indication: Morphoea
     Dosage: 0.5 MG/G
  10. HEPARIN SODIUM [Concomitant]
     Active Substance: HEPARIN SODIUM
     Indication: Morphoea
     Dosage: 1000 IU/G GEL?FOR 4 WEEKS
  11. BILASTINE [Concomitant]
     Active Substance: BILASTINE
     Indication: Morphoea

REACTIONS (2)
  - Pulmonary fibrosis [Unknown]
  - Bronchiectasis [Unknown]
